FAERS Safety Report 25916854 (Version 1)
Quarter: 2025Q4

REPORT INFORMATION
  Report Type: Spontaneous
  Country: GB (occurrence: GB)
  Receive Date: 20251014
  Receipt Date: 20251014
  Transmission Date: 20260117
  Serious: Yes (Other)
  Sender: AUROBINDO
  Company Number: GB-MHRA-MED-202510031522213980-GRTDZ

PATIENT
  Age: 32 Year
  Sex: Male
  Weight: 85 kg

DRUGS (1)
  1. FINASTERIDE [Suspect]
     Active Substance: FINASTERIDE
     Indication: Product used for unknown indication
     Dosage: 1 MILLIGRAM, DAILY
     Route: 065

REACTIONS (1)
  - Gynaecomastia [Recovering/Resolving]
